FAERS Safety Report 8518424-X (Version None)
Quarter: 2012Q3

REPORT INFORMATION
  Report Type: 
  Country: None (occurrence: None)
  Receive Date: 20120718
  Receipt Date: 20120222
  Transmission Date: 20120928
  Serious: No
  Sender: FDA-Public Use
  Company Number: US-BRISTOL-MYERS SQUIBB COMPANY-16412512

PATIENT
  Sex: Female

DRUGS (2)
  1. MULTAQ [Concomitant]
     Indication: ATRIAL FIBRILLATION
  2. COUMADIN [Suspect]
     Dosage: RX# 7085549 (SHOP RITE RX)

REACTIONS (1)
  - URINARY TRACT INFECTION [None]
